FAERS Safety Report 15567118 (Version 3)
Quarter: 2019Q1

REPORT INFORMATION
  Report Type: Report from Study
  Country: GB (occurrence: GB)
  Receive Date: 20181030
  Receipt Date: 20190320
  Transmission Date: 20190417
  Serious: Yes (Hospitalization, Other)
  Sender: FDA-Public Use
  Company Number: GB-JNJFOC-20181028506

PATIENT
  Age: 75 Year
  Sex: Female
  Weight: 75 kg

DRUGS (2)
  1. STELARA [Suspect]
     Active Substance: USTEKINUMAB
     Indication: PSORIASIS
     Route: 058
     Dates: start: 20131212
  2. STELARA [Suspect]
     Active Substance: USTEKINUMAB
     Indication: PSORIASIS
     Route: 058
     Dates: start: 20180718

REACTIONS (11)
  - Colporrhaphy [Recovered/Resolved]
  - Post procedural infection [Recovered/Resolved]
  - Anal incontinence [Unknown]
  - Candida infection [Unknown]
  - Postoperative wound infection [Recovered/Resolved]
  - Impaired healing [Recovering/Resolving]
  - Product dose omission [Unknown]
  - Lentigo [Unknown]
  - Psoriasis [Unknown]
  - Hysterectomy [Recovered/Resolved]
  - Vaginal prolapse [Unknown]

NARRATIVE: CASE EVENT DATE: 2018
